FAERS Safety Report 10200128 (Version 6)
Quarter: 2014Q3

REPORT INFORMATION
  Report Type: Report from Study
  Country: US (occurrence: US)
  Receive Date: 20140527
  Receipt Date: 20140822
  Transmission Date: 20150326
  Serious: Yes (Death, Hospitalization)
  Sender: FDA-Public Use
  Company Number: US-ACTELION-A-NJ2014-99216

PATIENT
  Age: 65 Year
  Sex: Female

DRUGS (2)
  1. TRACLEER [Suspect]
     Active Substance: BOSENTAN\BOSENTAN MONOHYDRATE
     Indication: PULMONARY ARTERIAL HYPERTENSION
     Dosage: UNK
     Route: 048
     Dates: end: 20140714
  2. COUMADIN [Concomitant]
     Active Substance: WARFARIN SODIUM
     Dosage: UNK

REACTIONS (5)
  - Pneumonia [Recovering/Resolving]
  - Muscle strain [Recovering/Resolving]
  - Dehydration [Recovering/Resolving]
  - Pulmonary embolism [Not Recovered/Not Resolved]
  - Lung adenocarcinoma [Fatal]

NARRATIVE: CASE EVENT DATE: 20140425
